FAERS Safety Report 8511643-8 (Version None)
Quarter: 2012Q3

REPORT INFORMATION
  Report Type: 
  Country: None (occurrence: None)
  Receive Date: 20120716
  Receipt Date: 20120703
  Transmission Date: 20120928
  Serious: Yes (Hospitalization, Other)
  Sender: FDA-Public Use
  Company Number: US-SANOFI-AVENTIS-2012SA040256

PATIENT
  Age: 88 Year
  Sex: Male
  Weight: 63.6 kg

DRUGS (6)
  1. AVAPRO [Concomitant]
  2. PLAVIX [Suspect]
     Route: 048
     Dates: start: 20120610
  3. ASPIRIN [Suspect]
  4. PLAVIX [Suspect]
     Indication: PULMONARY THROMBOSIS
     Route: 048
     Dates: start: 20120201
  5. LOPRESSOR [Concomitant]
     Dates: start: 20120101
  6. ATORVASTATIN [Concomitant]

REACTIONS (7)
  - PULMONARY THROMBOSIS [None]
  - HAEMORRHAGE [None]
  - PRURITUS [None]
  - ERYTHEMA [None]
  - CHEST PAIN [None]
  - BURNING SENSATION [None]
  - URTICARIA [None]
